FAERS Safety Report 10154406 (Version 2)
Quarter: 2014Q2

REPORT INFORMATION
  Report Type: Spontaneous
  Country: US (occurrence: US)
  Receive Date: 20140506
  Receipt Date: 20140529
  Transmission Date: 20141212
  Serious: No
  Sender: FDA-Public Use
  Company Number: US-PFIZER INC-2014121661

PATIENT
  Age: 61 Year
  Sex: Female

DRUGS (4)
  1. CELEBREX [Suspect]
     Indication: OSTEOARTHRITIS
     Dosage: 200 MG, DAILY
  2. CELEBREX [Suspect]
     Dosage: INCREASED DOSE
  3. DEXILANT [Concomitant]
     Indication: ABDOMINAL DISCOMFORT
     Dosage: 60 MG, DAILY
  4. DEXILANT [Concomitant]
     Indication: GASTROOESOPHAGEAL REFLUX DISEASE

REACTIONS (5)
  - Musculoskeletal stiffness [Unknown]
  - Muscle strain [Unknown]
  - Joint swelling [Recovered/Resolved]
  - Drug dose omission [Unknown]
  - Arthritis [Unknown]
